FAERS Safety Report 7548478-9 (Version None)
Quarter: 2011Q2

REPORT INFORMATION
  Report Type: 
  Country: None (occurrence: None)
  Receive Date: 20110615
  Receipt Date: 20110610
  Transmission Date: 20111010
  Serious: Yes (Hospitalization, Other)
  Sender: FDA-Public Use
  Company Number: FR-SANOFI-AVENTIS-2011SA037223

PATIENT
  Age: 73 Year
  Sex: Female

DRUGS (7)
  1. EUPRESSYL [Suspect]
     Indication: HYPERTENSION
     Route: 048
     Dates: end: 20100903
  2. DIAMICRON [Suspect]
     Indication: TYPE 2 DIABETES MELLITUS
     Route: 048
     Dates: end: 20100903
  3. IPERTEN [Suspect]
     Route: 048
     Dates: end: 20100903
  4. ANAFRANIL [Suspect]
     Route: 048
     Dates: start: 20100804
  5. INDAPAMIDE [Suspect]
     Route: 048
     Dates: end: 20100903
  6. ANAFRANIL [Suspect]
     Route: 048
     Dates: end: 20100903
  7. ZOLPIDEM [Concomitant]

REACTIONS (8)
  - VERTIGO [None]
  - FALL [None]
  - MALAISE [None]
  - HYPOKALAEMIA [None]
  - DIZZINESS POSTURAL [None]
  - DIZZINESS [None]
  - HYPOTENSION [None]
  - HYPONATRAEMIA [None]
